FAERS Safety Report 10094167 (Version 1)
Quarter: 2014Q2

REPORT INFORMATION
  Report Type: Spontaneous
  Country: US (occurrence: US)
  Receive Date: 20140422
  Receipt Date: 20140422
  Transmission Date: 20141212
  Serious: No
  Sender: FDA-Public Use
  Company Number: US-009507513-1404USA008307

PATIENT
  Sex: Male

DRUGS (4)
  1. PEGINTRON [Suspect]
     Indication: HEPATITIS C
     Dosage: REDIPEN, QW
     Route: 058
     Dates: start: 20140314
  2. REBETOL [Suspect]
     Indication: HEPATITIS C
     Dosage: 3 AM AND 3 PM
     Route: 048
     Dates: start: 20140314
  3. REBETOL [Suspect]
     Dosage: 2 AM AND I PM
     Route: 048
  4. SOVALDI [Concomitant]
     Dosage: 1 DF, QD
     Route: 048

REACTIONS (3)
  - Reproductive tract disorder [Unknown]
  - Headache [Recovered/Resolved]
  - Anaemia [Unknown]
